FAERS Safety Report 5232441-7 (Version None)
Quarter: 2007Q1

REPORT INFORMATION
  Report Type: 
  Country: None (occurrence: None)
  Receive Date: 20070205
  Receipt Date: 20070125
  Transmission Date: 20070707
  Serious: Yes (Hospitalization)
  Sender: FDA-Public Use
  Company Number: 230636K07USA

PATIENT
  Age: 44 Year
  Sex: Female
  Weight: 74.8435 kg

DRUGS (6)
  1. REBIF [Suspect]
     Indication: MULTIPLE SCLEROSIS
     Dosage: SUBCUTANEOUS
     Route: 058
     Dates: start: 20040201, end: 20060901
  2. MORPHINE SULFATE [Suspect]
     Dosage: NOT REPORTED, NOT REPORTED
     Dates: start: 20060601, end: 20060601
  3. NEURONTIN [Concomitant]
  4. LYRICA [Concomitant]
  5. DURAGESIC PATCH (FENTANYL /00174601/) [Concomitant]
  6. FENTANYL LOZENGERS (FENTANYL /00174601/) [Concomitant]

REACTIONS (10)
  - ARTHROPATHY [None]
  - CONDITION AGGRAVATED [None]
  - FALL [None]
  - HEAD INJURY [None]
  - HEART RATE DECREASED [None]
  - MOUTH INJURY [None]
  - MULTIPLE SCLEROSIS [None]
  - NO THERAPEUTIC RESPONSE [None]
  - RESPIRATORY RATE DECREASED [None]
  - TOOTH INJURY [None]
